FAERS Safety Report 22087196 (Version 1)
Quarter: 2023Q1

REPORT INFORMATION
  Report Type: Other
  Country: CA (occurrence: None)
  Receive Date: 20230313
  Receipt Date: 20230313
  Transmission Date: 20230417
  Serious: Yes (Other)
  Sender: FDA-Public Use
  Company Number: CA-ROCHE-3302963

PATIENT
  Sex: Female

DRUGS (1)
  1. VABYSMO [Suspect]
     Active Substance: FARICIMAB-SVOA
     Indication: Neovascular age-related macular degeneration
     Dosage: 6MG/0.05ML ;ONGOING: YES
     Route: 050
     Dates: start: 20221222

REACTIONS (2)
  - Pneumonia [Unknown]
  - Laryngitis [Unknown]
